FAERS Safety Report 21290191 (Version 1)
Quarter: 2022Q3

REPORT INFORMATION
  Report Type: Report from Study
  Country: US (occurrence: US)
  Receive Date: 20220902
  Receipt Date: 20220902
  Transmission Date: 20221027
  Serious: Yes (Hospitalization)
  Sender: FDA-Public Use
  Company Number: US-TAKEDA-2022TUS057666

PATIENT
  Age: 28 Year
  Sex: Male
  Weight: 103 kg

DRUGS (2)
  1. MARIBAVIR [Suspect]
     Active Substance: MARIBAVIR
     Indication: Cytomegalovirus infection
     Dosage: 400 MILLIGRAM, BID
     Route: 048
     Dates: start: 20220520, end: 20220815
  2. MARIBAVIR [Suspect]
     Active Substance: MARIBAVIR
     Indication: Cytomegalovirus viraemia
     Dosage: 400 MILLIGRAM, BID
     Route: 048
     Dates: start: 20220520, end: 20220801

REACTIONS (2)
  - Drug resistance [Recovering/Resolving]
  - Central venous catheterisation [Unknown]

NARRATIVE: CASE EVENT DATE: 20220520
